FAERS Safety Report 8064556-2 (Version None)
Quarter: 2012Q1

REPORT INFORMATION
  Report Type: 
  Country: None (occurrence: None)
  Receive Date: 20120123
  Receipt Date: 20120119
  Transmission Date: 20120608
  Serious: Yes (Other)
  Sender: FDA-Public Use
  Company Number: US-AMGEN-USASP2012003866

PATIENT

DRUGS (2)
  1. ANTINEOPLASTIC AGENTS [Concomitant]
     Indication: RENAL CELL CARCINOMA
  2. XGEVA [Suspect]
     Indication: RENAL CELL CARCINOMA
     Dosage: 120 MG, Q4WK

REACTIONS (1)
  - OSTEONECROSIS OF JAW [None]
